FAERS Safety Report 7419841-1 (Version None)
Quarter: 2011Q2

REPORT INFORMATION
  Report Type: 
  Country: None (occurrence: None)
  Receive Date: 20110413
  Receipt Date: 20110413
  Transmission Date: 20111010
  Serious: Yes (Life-Threatening)
  Sender: FDA-Public Use
  Company Number: None

PATIENT
  Sex: Male
  Weight: 65.318 kg

DRUGS (1)
  1. NAPROXEN [Suspect]
     Indication: MUSCLE STRAIN
     Dosage: 1 TAB -550 MG- TWICE DAILY PO
     Route: 048
     Dates: start: 20090404, end: 20110404

REACTIONS (4)
  - THROAT IRRITATION [None]
  - PHARYNGEAL OEDEMA [None]
  - DYSPNOEA [None]
  - RHINORRHOEA [None]
